FAERS Safety Report 13287919 (Version 9)
Quarter: 2021Q2

REPORT INFORMATION
  Report Type: Spontaneous
  Country: US (occurrence: US)
  Receive Date: 20170302
  Receipt Date: 20210609
  Transmission Date: 20210716
  Serious: No
  Sender: FDA-Public Use
  Company Number: PHEH2017US006296

PATIENT
  Sex: Female

DRUGS (1)
  1. ZOFRAN ODT [Suspect]
     Active Substance: ONDANSETRON HYDROCHLORIDE
     Indication: MORNING SICKNESS
     Dosage: 4 MG, Q4H
     Route: 048
     Dates: start: 20011012, end: 20011225

REACTIONS (11)
  - Emotional distress [Unknown]
  - Uterine enlargement [Unknown]
  - Dysplasia [Unknown]
  - Headache [Unknown]
  - Arthralgia [Unknown]
  - Migraine [Unknown]
  - Maternal exposure during pregnancy [Unknown]
  - Product use in unapproved indication [Unknown]
  - Heavy menstrual bleeding [Unknown]
  - Back pain [Unknown]
  - Injury [Unknown]
